FAERS Safety Report 21628928 (Version 1)
Quarter: 2022Q4

REPORT INFORMATION
  Report Type: Spontaneous
  Country: US (occurrence: None)
  Receive Date: 20221121
  Receipt Date: 20221121
  Transmission Date: 20230112
  Serious: No
  Sender: FDA-Public Use
  Company Number: None

PATIENT
  Sex: Female

DRUGS (1)
  1. CAPECITABINE [Suspect]
     Active Substance: CAPECITABINE
     Dosage: FREQUENCY : TWICE A DAY;?
     Route: 048

REACTIONS (12)
  - Therapy cessation [None]
  - Therapy non-responder [None]
  - Disease progression [None]
  - Nonspecific reaction [None]
  - Constipation [None]
  - Diarrhoea [None]
  - Cough [None]
  - Paraesthesia [None]
  - Paraesthesia oral [None]
  - Paraesthesia oral [None]
  - Bronchitis [None]
  - Neuropathy peripheral [None]
